FAERS Safety Report 19667408 (Version 1)
Quarter: 2021Q3

REPORT INFORMATION
  Report Type: Report from Study
  Country: ES (occurrence: ES)
  Receive Date: 20210806
  Receipt Date: 20210806
  Transmission Date: 20211014
  Serious: Yes (Other)
  Sender: FDA-Public Use
  Company Number: ES-MYLANLABS-2021M1049137

PATIENT
  Age: 72 Year
  Sex: Female

DRUGS (3)
  1. PREGABALIN. [Suspect]
     Active Substance: PREGABALIN
     Indication: TREMOR
     Dosage: UNK
     Route: 065
  2. CLONAZEPAM. [Interacting]
     Active Substance: CLONAZEPAM
     Indication: TREMOR
     Dosage: UNK
     Route: 065
  3. PERAMPANEL [Interacting]
     Active Substance: PERAMPANEL
     Indication: ORTHOSTATIC TREMOR
     Dosage: 2 MILLIGRAM, QD
     Route: 065

REACTIONS (3)
  - Gait disturbance [Unknown]
  - Drug interaction [Unknown]
  - Off label use [Unknown]
